FAERS Safety Report 11409853 (Version 2)
Quarter: 2017Q3

REPORT INFORMATION
  Report Type: Spontaneous
  Country: IN (occurrence: IN)
  Receive Date: 20150824
  Receipt Date: 20170706
  Transmission Date: 20171127
  Serious: Yes (Other)
  Sender: FDA-Public Use
  Company Number: IN-SUN PHARMACEUTICAL INDUSTRIES LTD-2015R1-101740

PATIENT
  Sex: Female

DRUGS (1)
  1. ACITRETIN. [Suspect]
     Active Substance: ACITRETIN
     Indication: ICHTHYOSIS
     Dosage: 25 MG, QD
     Route: 048

REACTIONS (2)
  - Vitamin D deficiency [Unknown]
  - Rickets [Unknown]
